FAERS Safety Report 4452916-8 (Version None)
Quarter: 2004Q3

REPORT INFORMATION
  Report Type: 
  Country: None (occurrence: None)
  Receive Date: 20040916
  Receipt Date: 20040902
  Transmission Date: 20050211
  Serious: Yes (Other)
  Sender: FDA-Public Use
  Company Number: 2004047826

PATIENT
  Age: 76 Year
  Sex: Male
  Weight: 122.4712 kg

DRUGS (4)
  1. NEURONTIN [Suspect]
     Indication: HERPES ZOSTER
     Dosage: ORAL
     Route: 048
  2. CELECOXIB (CELELCOXIB) [Concomitant]
  3. FUROSEMIDE [Concomitant]
  4. ALLOPURINOL [Concomitant]

REACTIONS (3)
  - POST PROCEDURAL COMPLICATION [None]
  - TRANSURETHRAL PROSTATECTOMY [None]
  - URINARY INCONTINENCE [None]
